FAERS Safety Report 7964807-6 (Version None)
Quarter: 2011Q4

REPORT INFORMATION
  Report Type: 
  Country: None (occurrence: None)
  Receive Date: 20111205
  Receipt Date: 20111121
  Transmission Date: 20120403
  Serious: Yes (Hospitalization)
  Sender: FDA-Public Use
  Company Number: FRP11000286

PATIENT
  Age: 69 Year
  Sex: Female

DRUGS (8)
  1. PREDNISONE [Concomitant]
  2. ACTONEL [Suspect]
     Dosage: 75 MG, 2 CD/MONTH, ORAL
     Route: 048
  3. LEUCOVORIN CALCIUM [Suspect]
     Dosage: 20 MG, 1/WEEK, ORAL
     Route: 048
  4. ENBREL [Suspect]
     Indication: RHEUMATOID ARTHRITIS
     Dosage: 50 MG, 1/WEEK, SUBCUTANEOUS
     Route: 058
     Dates: start: 20101101
  5. LANSOPRAZOLE [Suspect]
     Dosage: 15 MG, AS NEEDED, ORAL
     Route: 048
  6. CALTRATE + VITAMIN D (CALCIUM CARBONATE, COLECALCIFEROL) [Suspect]
     Dosage: 1 DF, 1/DAY, ORAL
     Route: 048
  7. METHOTREXATE [Suspect]
     Dosage: 20 MG/ML, 1/DAY, INJECTION NOS
     Dates: start: 19920101
  8. CELEBREX [Suspect]
     Dosage: 200 MG, 1/DAY, ORAL
     Route: 048

REACTIONS (7)
  - PSYCHOMOTOR HYPERACTIVITY [None]
  - PERSECUTORY DELUSION [None]
  - HALLUCINATION, AUDITORY [None]
  - SCHIZOPHRENIA [None]
  - INSOMNIA [None]
  - DEMENTIA [None]
  - WEIGHT DECREASED [None]
